FAERS Safety Report 7551041-7 (Version None)
Quarter: 2011Q2

REPORT INFORMATION
  Report Type: 
  Country: None (occurrence: None)
  Receive Date: 20110616
  Receipt Date: 20110523
  Transmission Date: 20111010
  Serious: Yes (Other)
  Sender: FDA-Public Use
  Company Number: US-BAYER-2010-002070

PATIENT
  Age: 41 Year
  Sex: Female
  Weight: 107 kg

DRUGS (7)
  1. NAPROXEN [Concomitant]
     Dosage: UNK
     Dates: start: 20090601
  2. DROSPIRENONE AND ETHINYL ESTRADIOL [Suspect]
     Indication: PREMENSTRUAL SYNDROME
     Dosage: UNK
     Route: 048
     Dates: start: 20070901, end: 20100201
  3. CLARITIN-D 24 HOUR [Concomitant]
     Dosage: UNK
     Dates: start: 20090601
  4. YASMIN [Suspect]
     Indication: PREMENSTRUAL SYNDROME
     Dosage: UNK
     Route: 048
     Dates: start: 20070901, end: 20100201
  5. PREDNISONE [Concomitant]
     Dosage: UNK
     Dates: start: 20090701
  6. HYDROCHLOROTHIAZIDE [Concomitant]
     Dosage: UNK
     Dates: start: 20090501
  7. VERAPAMIL [Concomitant]
     Dosage: UNK
     Dates: start: 20090501

REACTIONS (1)
  - HEPATIC FAILURE [None]
